FAERS Safety Report 5421910-2 (Version None)
Quarter: 2007Q3

REPORT INFORMATION
  Report Type: 
  Country: None (occurrence: None)
  Receive Date: 20070821
  Receipt Date: 20070821
  Transmission Date: 20080115
  Serious: Yes (Hospitalization)
  Sender: FDA-Public Use
  Company Number: None

PATIENT
  Sex: Female
  Weight: 69.8 kg

DRUGS (3)
  1. FLUOROURACIL [Suspect]
     Dosage: 835 MG
     Dates: end: 20070628
  2. CYCLOPHOSPHAMIDE [Suspect]
     Dosage: 835 MG
     Dates: end: 20070628
  3. EPIRUBICIN [Suspect]
     Dosage: 167 MG
     Dates: end: 20070628

REACTIONS (7)
  - APHASIA [None]
  - CEREBRAL INFARCTION [None]
  - DEHYDRATION [None]
  - DIZZINESS [None]
  - FATIGUE [None]
  - SYNCOPE [None]
  - UNRESPONSIVE TO STIMULI [None]
